FAERS Safety Report 9263527 (Version 1)
Quarter: 2013Q2

REPORT INFORMATION
  Report Type: Spontaneous
  Country: US (occurrence: US)
  Receive Date: 20130430
  Receipt Date: 20130430
  Transmission Date: 20140414
  Serious: Yes (Hospitalization)
  Sender: FDA-Public Use
  Company Number: US-BAYER-2013-052073

PATIENT
  Age: 39 Year
  Sex: Female
  Weight: 73.47 kg

DRUGS (8)
  1. YAZ [Suspect]
  2. MULTIVITAMINS [Concomitant]
     Dosage: UNK
     Route: 048
     Dates: start: 20111106
  3. CALCIUM [Concomitant]
     Dosage: UNK
     Route: 048
     Dates: start: 20111106
  4. VITAMIN D [Concomitant]
     Dosage: UNK
     Route: 048
     Dates: start: 20111106
  5. ACETAMINOPHEN [Concomitant]
  6. CLINDAMYCIN [Concomitant]
  7. COLACE [Concomitant]
  8. OXYCODONE [Concomitant]

REACTIONS (3)
  - Deep vein thrombosis [Recovered/Resolved]
  - Pelvic venous thrombosis [Recovered/Resolved]
  - Thrombophlebitis superficial [None]
